FAERS Safety Report 9632959 (Version 2)
Quarter: 2013Q4

REPORT INFORMATION
  Report Type: Report from Study
  Country: BR (occurrence: BR)
  Receive Date: 20131018
  Receipt Date: 20131018
  Transmission Date: 20140711
  Serious: Yes (Hospitalization, Other)
  Sender: FDA-Public Use
  Company Number: BR-ABBVIE-13P-020-1119120-00

PATIENT
  Sex: Female
  Weight: 70 kg

DRUGS (4)
  1. HUMIRA [Suspect]
     Indication: RHEUMATOID ARTHRITIS
     Route: 058
     Dates: start: 201303, end: 201307
  2. NIMESULID [Concomitant]
     Indication: PRODUCT USED FOR UNKNOWN INDICATION
     Route: 048
  3. PREDNISONE [Concomitant]
     Indication: ARTHRALGIA
  4. PREDNISONE [Concomitant]
     Indication: PROPHYLAXIS

REACTIONS (3)
  - Hepatomegaly [Unknown]
  - Liver disorder [Recovering/Resolving]
  - Abdominal pain upper [Recovered/Resolved]
